FAERS Safety Report 19423855 (Version 2)
Quarter: 2023Q4

REPORT INFORMATION
  Report Type: Spontaneous
  Country: US (occurrence: US)
  Receive Date: 20210616
  Receipt Date: 20231208
  Transmission Date: 20240109
  Serious: Yes (Other)
  Sender: FDA-Public Use
  Company Number: US-PFIZER INC-2021670521

PATIENT
  Age: 66 Year
  Sex: Female

DRUGS (2)
  1. BRAFTOVI [Suspect]
     Active Substance: ENCORAFENIB
     Indication: Colon cancer
     Dosage: TAKE 4 CAPSULES DAILY
     Route: 048
     Dates: start: 20210602
  2. BRAFTOVI [Suspect]
     Active Substance: ENCORAFENIB
     Dosage: 75MG, 4 CAPSULES A DAY, APPROXIMATELY 300MG TOTAL DAILY
     Route: 048

REACTIONS (3)
  - Colonic abscess [Unknown]
  - Poor quality product administered [Unknown]
  - Product physical issue [Unknown]
